FAERS Safety Report 5873995-7 (Version None)
Quarter: 2008Q3

REPORT INFORMATION
  Report Type: 
  Country: None (occurrence: None)
  Receive Date: 20080908
  Receipt Date: 20080825
  Transmission Date: 20090109
  Serious: Yes (Death, Other)
  Sender: FDA-Public Use
  Company Number: SK-ELI_LILLY_AND_COMPANY-SK200808005224

PATIENT
  Age: 37 Year
  Sex: Male

DRUGS (4)
  1. CYMBALTA [Suspect]
     Indication: DEPRESSION
     Dosage: 120 MG, UNKNOWN
     Route: 048
     Dates: start: 20080701, end: 20080801
  2. ZYPREXA [Suspect]
     Indication: DEPRESSION
     Dosage: 5 MG, UNKNOWN
     Route: 048
     Dates: start: 20080601, end: 20080801
  3. VENLAFAXINE HCL [Concomitant]
     Dosage: UNK UNK, UNKNOWN
     Route: 065
  4. CHLORPROTHIXEN [Concomitant]
     Dosage: UNK UNK, UNKNOWN
     Route: 065

REACTIONS (2)
  - ANGINA PECTORIS [None]
  - DEATH [None]
